FAERS Safety Report 26194106 (Version 1)
Quarter: 2025Q4

REPORT INFORMATION
  Report Type: Spontaneous
  Country: EU (occurrence: EU)
  Receive Date: 20251224
  Receipt Date: 20251224
  Transmission Date: 20260117
  Serious: Yes (Other)
  Sender: AUROBINDO
  Company Number: EU-AUROBINDO-AUR-APL-2014-11705

PATIENT
  Age: 59 Year
  Sex: Male
  Weight: 92 kg

DRUGS (4)
  1. PRAVASTATIN [Suspect]
     Active Substance: PRAVASTATIN
     Indication: Low density lipoprotein increased
     Dosage: 20 MG, ONCE A DAY
     Route: 061
     Dates: start: 201007, end: 201010
  2. SIMVASTATIN [Suspect]
     Active Substance: SIMVASTATIN
     Indication: Low density lipoprotein increased
     Dosage: 20 MG, ONCE A DAY
     Route: 061
     Dates: start: 201001, end: 201003
  3. FLUVASTATIN [Suspect]
     Active Substance: FLUVASTATIN SODIUM
     Indication: Low density lipoprotein increased
     Dosage: 40 MG, ONCE A DAY
     Route: 061
     Dates: start: 201004, end: 201006
  4. ATORVASTATIN [Suspect]
     Active Substance: ATORVASTATIN
     Indication: Low density lipoprotein increased
     Dosage: 20 MG, ONCE A DAY
     Route: 061
     Dates: start: 201011, end: 201012

REACTIONS (2)
  - Immobile [Recovered/Resolved]
  - Myalgia [Recovered/Resolved]

NARRATIVE: CASE EVENT DATE: 20100101
